FAERS Safety Report 20842097 (Version 2)
Quarter: 2022Q2

REPORT INFORMATION
  Report Type: Spontaneous
  Country: US (occurrence: US)
  Receive Date: 20220518
  Receipt Date: 20220530
  Transmission Date: 20220720
  Serious: No
  Sender: FDA-Public Use
  Company Number: US-JNJFOC-20220528544

PATIENT
  Age: 15 Year

DRUGS (1)
  1. SIMPONI [Suspect]
     Active Substance: GOLIMUMAB
     Indication: Rheumatoid arthritis
     Route: 058

REACTIONS (5)
  - Off label use [Unknown]
  - Product use issue [Unknown]
  - Underdose [Unknown]
  - Accidental exposure to product [Unknown]
  - Device issue [Unknown]
